FAERS Safety Report 23320729 (Version 1)
Quarter: 2023Q4

REPORT INFORMATION
  Report Type: Spontaneous
  Country: US (occurrence: US)
  Receive Date: 20231220
  Receipt Date: 20231220
  Transmission Date: 20240109
  Serious: No
  Sender: FDA-Public Use
  Company Number: US-GRANULES-US-2023GRASPO00350

PATIENT
  Age: 29 Year
  Sex: Female
  Weight: 145 kg

DRUGS (1)
  1. ACETAMINOPHEN [Suspect]
     Active Substance: ACETAMINOPHEN
     Indication: Toothache
     Dosage: 2 DOSAGE FORMS OF 650 MG ON 05-NOV-2023 AND 2 DOSAGE FORMS OF 650 MG ON 08-NOV-2023 TOTAL 4 TABLETS
     Route: 048
     Dates: start: 20231105, end: 20231108

REACTIONS (4)
  - Dizziness [Recovered/Resolved]
  - Headache [Recovered/Resolved]
  - Nausea [Recovered/Resolved]
  - Heart rate increased [Recovered/Resolved]

NARRATIVE: CASE EVENT DATE: 20231105
